FAERS Safety Report 5480417-7 (Version None)
Quarter: 2007Q4

REPORT INFORMATION
  Report Type: 
  Country: None (occurrence: None)
  Receive Date: 20071004
  Receipt Date: 20071004
  Transmission Date: 20080405
  Serious: No
  Sender: FDA-Public Use
  Company Number: None

PATIENT
  Sex: Female
  Weight: 87.0906 kg

DRUGS (3)
  1. CLONAZEPAM [Suspect]
     Dosage: 1MG TID P.O.
     Route: 048
  2. WELLBUTRIN XL [Concomitant]
  3. VISTARIL [Concomitant]

REACTIONS (1)
  - HEADACHE [None]
